FAERS Safety Report 9663800 (Version 3)
Quarter: 2014Q2

REPORT INFORMATION
  Report Type: Spontaneous
  Country: US (occurrence: US)
  Receive Date: 20131101
  Receipt Date: 20140625
  Transmission Date: 20141212
  Serious: Yes (Hospitalization)
  Sender: FDA-Public Use
  Company Number: US-B.I. PHARMACEUTICALS,INC./RIDGEFIELD-2013-BI-34126BP

PATIENT
  Age: 66 Year
  Sex: Male
  Weight: 106.59 kg

DRUGS (18)
  1. PRADAXA [Suspect]
     Indication: ANTICOAGULANT THERAPY
     Route: 065
     Dates: start: 20110222, end: 20110908
  2. KLOR-CON [Concomitant]
     Route: 065
     Dates: start: 2000
  3. PREVACID [Concomitant]
     Route: 065
     Dates: start: 2000
  4. DIGOXIN [Concomitant]
     Route: 065
     Dates: start: 2000
  5. ZEMPLAR [Concomitant]
     Route: 065
     Dates: start: 2000
  6. LOVANZA [Concomitant]
     Route: 065
     Dates: start: 2000
  7. COLCRYS [Concomitant]
     Route: 065
     Dates: start: 2000
  8. FERROUS SULFATE [Concomitant]
     Route: 065
     Dates: start: 2007
  9. LEVOTHYROXINE [Concomitant]
     Route: 065
     Dates: start: 2007
  10. LASIX [Concomitant]
     Route: 065
  11. COUMADIN [Concomitant]
     Route: 065
  12. EFFEXOR [Concomitant]
     Route: 065
  13. ULORIC [Concomitant]
     Route: 065
  14. LOSARTAN [Concomitant]
     Route: 065
  15. LANTUS [Concomitant]
     Route: 065
  16. VITAMIN C [Concomitant]
     Route: 065
  17. LOMOTIL [Concomitant]
     Route: 065
  18. VICODIN [Concomitant]
     Route: 065

REACTIONS (2)
  - Gastrointestinal haemorrhage [Unknown]
  - Haemorrhagic stroke [Unknown]
